FAERS Safety Report 7441133-5 (Version None)
Quarter: 2011Q2

REPORT INFORMATION
  Report Type: 
  Country: None (occurrence: None)
  Receive Date: 20110428
  Receipt Date: 20110419
  Transmission Date: 20111010
  Serious: Yes (Death)
  Sender: FDA-Public Use
  Company Number: US-BIOGENIDEC-2009BI030159

PATIENT
  Age: 55 Year
  Sex: Male

DRUGS (11)
  1. CYMBALTA [Concomitant]
  2. MULTI-VITAMIN [Concomitant]
  3. VITAMIN D [Concomitant]
  4. TYSABRI [Suspect]
     Indication: SECONDARY PROGRESSIVE MULTIPLE SCLEROSIS
     Route: 042
     Dates: start: 20080118, end: 20090909
  5. OMEPRAZOLE [Concomitant]
  6. ACAI BERRY [Concomitant]
  7. BACLOFEN [Concomitant]
  8. VITAMIN B COMPLEX CAP [Concomitant]
  9. ZINC [Concomitant]
  10. ASPIRIN [Concomitant]
  11. ALPRAZOLAM [Concomitant]

REACTIONS (2)
  - PULMONARY EMBOLISM [None]
  - DEPRESSION [None]
